FAERS Safety Report 10757256 (Version 2)
Quarter: 2015Q2

REPORT INFORMATION
  Report Type: Spontaneous
  Country: US (occurrence: US)
  Receive Date: 20150203
  Receipt Date: 20150421
  Transmission Date: 20150821
  Serious: No
  Sender: FDA-Public Use
  Company Number: US-LEO PHARMA-232156

PATIENT
  Age: 55 Year
  Sex: Female

DRUGS (1)
  1. PICATO [Suspect]
     Active Substance: INGENOL MEBUTATE
     Indication: ACTINIC KERATOSIS
     Route: 061
     Dates: start: 20150119, end: 20150119

REACTIONS (10)
  - Insomnia [Recovered/Resolved]
  - Headache [Recovered/Resolved]
  - Lip swelling [Recovered/Resolved]
  - Application site pustules [Recovered/Resolved]
  - Application site erythema [Not Recovered/Not Resolved]
  - Application site reaction [Recovered/Resolved]
  - Application site paraesthesia [Recovered/Resolved]
  - Eye swelling [Recovered/Resolved]
  - Incorrect drug administration duration [Unknown]
  - Drug administered at inappropriate site [Unknown]

NARRATIVE: CASE EVENT DATE: 20150119
